FAERS Safety Report 7891815-6 (Version None)
Quarter: 2011Q4

REPORT INFORMATION
  Report Type: 
  Country: None (occurrence: None)
  Receive Date: 20111103
  Receipt Date: 20110810
  Transmission Date: 20120403
  Serious: No
  Sender: FDA-Public Use
  Company Number: US-AMGEN-USASP2011040685

PATIENT
  Age: 67 Year
  Sex: Female

DRUGS (2)
  1. ENBREL [Suspect]
     Indication: RHEUMATOID ARTHRITIS
     Dosage: 50 MG, QWK
     Dates: start: 20110705
  2. TREXALL [Concomitant]
     Dosage: 1 MG, QWK
     Dates: start: 20110401

REACTIONS (6)
  - INJECTION SITE HAEMATOMA [None]
  - PAIN IN EXTREMITY [None]
  - GAIT DISTURBANCE [None]
  - ASTHENIA [None]
  - NEEDLE ISSUE [None]
  - INJECTION SITE REACTION [None]
